FAERS Safety Report 12993304 (Version 1)
Quarter: 2016Q4

REPORT INFORMATION
  Report Type: Report from Study
  Country: FR (occurrence: FR)
  Receive Date: 20161202
  Receipt Date: 20161202
  Transmission Date: 20170207
  Serious: Yes (Hospitalization, Other)
  Sender: FDA-Public Use
  Company Number: FR-PFIZER INC-2016534695

PATIENT
  Age: 71 Year
  Sex: Female
  Weight: 45 kg

DRUGS (42)
  1. METHYLPREDNISOLONE. [Concomitant]
     Active Substance: METHYLPREDNISOLONE
     Dosage: 60 MG, DAILY
     Dates: start: 20161026
  2. DOLIPRANE [Concomitant]
     Active Substance: ACETAMINOPHEN
     Indication: PAIN
     Dosage: 1 G, 2X/DAY
     Route: 048
     Dates: start: 20161102, end: 20161102
  3. VITAMIN K [Concomitant]
     Active Substance: PHYTONADIONE
     Indication: VITAMIN K DEFICIENCY
     Dosage: 10 MG, DAILY
     Route: 042
     Dates: start: 20161013
  4. LOVENOX [Concomitant]
     Active Substance: ENOXAPARIN SODIUM
     Indication: ANTICOAGULANT THERAPY
     Dosage: 4000 IU/L, DAILY
     Route: 042
     Dates: start: 20161025
  5. PIPERACILIN/TAZOBACTAM [Concomitant]
     Active Substance: PIPERACILLIN SODIUM\TAZOBACTAM SODIUM
     Indication: FEBRILE NEUTROPENIA
     Dosage: 4 G / 500 MG
     Route: 042
     Dates: start: 20161104, end: 20161107
  6. AZANTAC [Concomitant]
     Active Substance: RANITIDINE HYDROCHLORIDE
     Indication: GASTROOESOPHAGEAL REFLUX DISEASE
     Dosage: 150 MG, 1X/DAY
     Route: 048
     Dates: start: 20161012, end: 20161101
  7. AZANTAC [Concomitant]
     Active Substance: RANITIDINE HYDROCHLORIDE
     Dosage: 50 MG / 2 ML TWICE A DAY
     Dates: start: 20161018, end: 20161022
  8. AZANTAC [Concomitant]
     Active Substance: RANITIDINE HYDROCHLORIDE
     Dosage: UNK
     Dates: start: 20161028, end: 20161103
  9. HYDROXYZINE [Concomitant]
     Active Substance: HYDROXYZINE\HYDROXYZINE HYDROCHLORIDE
     Dosage: 100 MG / 2 ML DAILY
     Route: 042
     Dates: start: 20161026, end: 20161027
  10. LARGACTIL /00011901/ [Concomitant]
     Active Substance: CHLORPROMAZINE
     Dosage: 25 MG / 5 ML DAILY
     Dates: start: 20161024, end: 20161104
  11. NORMACOL /00086101/ [Concomitant]
     Active Substance: SULFAMETHOXAZOLE\TRIMETHOPRIM
     Indication: CONSTIPATION
     Dosage: 1 DF, SINGLE
     Route: 054
     Dates: start: 20161026, end: 20161026
  12. PALBOCICLIB [Suspect]
     Active Substance: PALBOCICLIB
     Dosage: 125 MG, DAILY
     Dates: start: 20160913, end: 20161102
  13. METHYLPREDNISOLONE. [Concomitant]
     Active Substance: METHYLPREDNISOLONE
     Indication: INFLAMMATION
     Dosage: 120 MG, 1X/DAY
     Route: 042
     Dates: start: 20161004
  14. NORMACOL /00086101/ [Concomitant]
     Active Substance: SULFAMETHOXAZOLE\TRIMETHOPRIM
     Dosage: 1 DF, SINGLE
     Route: 054
     Dates: start: 20161028, end: 20161028
  15. PANTOPRAZOLE [Concomitant]
     Active Substance: PANTOPRAZOLE SODIUM
     Indication: GASTROOESOPHAGEAL REFLUX DISEASE
     Dosage: 40 MG, 1X/DAY
     Route: 042
     Dates: start: 20161003, end: 20161011
  16. BIONOLYTE [Concomitant]
     Active Substance: UNSPECIFIED INGREDIENT
     Indication: FLUID REPLACEMENT
     Dosage: UNK UNK, 1X/DAY
     Route: 042
     Dates: start: 20161014, end: 20161020
  17. PARACETAMOL [Concomitant]
     Active Substance: ACETAMINOPHEN
     Dosage: 10 MG / ML 4 TIMES A DAY
     Route: 042
     Dates: start: 20161026
  18. HYDROXYZINE [Concomitant]
     Active Substance: HYDROXYZINE\HYDROXYZINE HYDROCHLORIDE
     Dosage: 25 MG, DAILY
     Dates: start: 20161021, end: 20161021
  19. HYDROXYZINE [Concomitant]
     Active Substance: HYDROXYZINE\HYDROXYZINE HYDROCHLORIDE
     Dosage: 100 MG / 2 ML DAILY
     Route: 042
     Dates: start: 20161031, end: 20161106
  20. LARGACTIL /00011901/ [Concomitant]
     Active Substance: CHLORPROMAZINE
     Indication: AGITATION
     Dosage: 25 MG / 5 ML SINGLE
     Dates: start: 20161022, end: 20161022
  21. CEFOTAXIME [Concomitant]
     Active Substance: CEFOTAXIME SODIUM
     Indication: MENINGITIS
     Dosage: 1 G, 2X/DAY
     Route: 042
     Dates: start: 20161008, end: 20161018
  22. FUNGIZONE [Concomitant]
     Active Substance: AMPHOTERICIN B
     Indication: FUNGAL INFECTION
     Dosage: 40 ML, 1X/DAY
     Route: 042
     Dates: start: 20161008, end: 20161015
  23. VITAMIN K [Concomitant]
     Active Substance: PHYTONADIONE
     Dosage: 10 MG, SINGLE
     Route: 042
     Dates: start: 20161109, end: 20161109
  24. GAVISCON /00237601/ [Concomitant]
     Active Substance: ALUMINUM HYDROXIDE\MAGNESIUM CARBONATE
     Indication: DYSPEPSIA
     Dosage: 1 DF, UNK
     Route: 048
     Dates: start: 20161024, end: 20161025
  25. NORMACOL /00086101/ [Concomitant]
     Active Substance: SULFAMETHOXAZOLE\TRIMETHOPRIM
     Dosage: 1 DF, SINGLE
     Route: 054
     Dates: start: 20161103, end: 20161103
  26. KABIVEN [Concomitant]
     Active Substance: AMINO ACIDS\ANHYDROUS DEXTROSE\CALCIUM CHLORIDE\MAGNESIUM SULFATE HEPTAHYDRATE\POTASSIUM CHLORIDE\SODIUM ACETATE\SODIUM GLYCEROPHOSPHATE ANHYDROUS\SOYBEAN OIL
     Dosage: 1080 ML, 1X/DAY
     Route: 042
     Dates: start: 20161004, end: 20161014
  27. SOLUPRED /00016201/ [Concomitant]
     Active Substance: PREDNISOLONE
     Dosage: 60 MG, DAILY
     Route: 042
     Dates: start: 20161019, end: 20161021
  28. OFLOXACINE [Concomitant]
     Active Substance: OFLOXACIN
     Dosage: 200 MG, DAILY
     Route: 048
     Dates: start: 20161029
  29. PARACETAMOL [Concomitant]
     Active Substance: ACETAMINOPHEN
     Indication: PAIN
     Dosage: 1 G, 4X/DAY
     Route: 042
     Dates: start: 20161002
  30. SOLUPRED /00016201/ [Concomitant]
     Active Substance: PREDNISOLONE
     Dosage: 60 MG, SINGLE
     Dates: start: 20161026
  31. MOVICOL [Concomitant]
     Active Substance: POLYETHYLENE GLYCOL 3350\POTASSIUM CHLORIDE\SODIUM BICARBONATE\SODIUM CHLORIDE
     Indication: CONSTIPATION
     Dosage: 1 DF, DAILY
     Dates: start: 20161101, end: 20161102
  32. PANTOPRAZOLE [Concomitant]
     Active Substance: PANTOPRAZOLE SODIUM
     Dosage: 40 MG, DAILY
     Dates: start: 20161103
  33. BIONOLYTE [Concomitant]
     Active Substance: UNSPECIFIED INGREDIENT
     Dosage: 500 ML, DAILY
     Dates: start: 20161024
  34. SODIUM CHLORIDE. [Concomitant]
     Active Substance: SODIUM CHLORIDE
     Dosage: 1 L, 1X/DAY
     Route: 042
     Dates: start: 20161002, end: 20161014
  35. VITAMIN K [Concomitant]
     Active Substance: PHYTONADIONE
     Dosage: 10 MG, SINGLE
     Route: 042
     Dates: start: 20161019, end: 20161019
  36. VITAMIN K [Concomitant]
     Active Substance: PHYTONADIONE
     Dosage: 10 MG, SINGLE
     Route: 042
     Dates: start: 20161029, end: 20161029
  37. HYDROXYZINE [Concomitant]
     Active Substance: HYDROXYZINE\HYDROXYZINE HYDROCHLORIDE
     Indication: ANXIETY
     Dosage: 25 MG, DAILY
     Route: 048
     Dates: start: 20161019, end: 20161019
  38. LARGACTIL /00011901/ [Concomitant]
     Active Substance: CHLORPROMAZINE
     Dosage: 25 MG / ML DAILY
     Dates: start: 20161104
  39. AMOXICILLIN SODIUM W/CLAVULANIC ACID [Concomitant]
     Active Substance: AMOXICILLIN\CLAVULANATE POTASSIUM
     Dosage: 1 G / 200 MG DAILY
     Route: 042
     Dates: start: 20161103, end: 20161104
  40. AMOXICILLIN SODIUM W/CLAVULANIC ACID [Concomitant]
     Active Substance: AMOXICILLIN\CLAVULANATE POTASSIUM
     Dosage: 1 G / 125 MG DAILY
     Dates: start: 20161102, end: 20161104
  41. LANSOYL [Concomitant]
     Active Substance: MINERAL OIL
     Indication: CONSTIPATION
     Dosage: 1 DF, UNK
     Route: 048
     Dates: start: 20161102
  42. NORMACOL /00086101/ [Concomitant]
     Active Substance: SULFAMETHOXAZOLE\TRIMETHOPRIM
     Dosage: 1 DF, SINGLE
     Route: 054
     Dates: start: 20161101, end: 20161101

REACTIONS (8)
  - Thrombocytopenia [Not Recovered/Not Resolved]
  - Alanine aminotransferase increased [Recovered/Resolved]
  - Neutropenia [Not Recovered/Not Resolved]
  - Vomiting [Unknown]
  - Anaemia [Not Recovered/Not Resolved]
  - Hyperbilirubinaemia [Recovered/Resolved]
  - Biliary tract infection [Unknown]
  - Aspartate aminotransferase increased [Recovered/Resolved]

NARRATIVE: CASE EVENT DATE: 20160913
